FAERS Safety Report 10084789 (Version 3)
Quarter: 2014Q2

REPORT INFORMATION
  Report Type: Spontaneous
  Country: ES (occurrence: ES)
  Receive Date: 20140417
  Receipt Date: 20140613
  Transmission Date: 20141212
  Serious: Yes (Other)
  Sender: FDA-Public Use
  Company Number: ES-AMGEN INC.-ESPSP2014026631

PATIENT
  Age: 73 Year
  Sex: Female
  Weight: 92 kg

DRUGS (3)
  1. MIMPARA [Suspect]
     Indication: HYPERPARATHYROIDISM PRIMARY
     Dosage: 30 MG, QD
     Route: 048
     Dates: start: 20130601, end: 20130603
  2. PROLIA [Concomitant]
     Indication: OSTEOPOROSIS
     Dosage: 60 MG, Q6MO
     Route: 058
     Dates: start: 20130501
  3. SINTROM [Concomitant]
     Indication: ATRIAL FIBRILLATION

REACTIONS (1)
  - Petit mal epilepsy [Recovered/Resolved]
